FAERS Safety Report 13130958 (Version 2)
Quarter: 2017Q1

REPORT INFORMATION
  Report Type: Spontaneous
  Country: US (occurrence: US)
  Receive Date: 20170119
  Receipt Date: 20170225
  Transmission Date: 20170428
  Serious: No
  Sender: FDA-Public Use
  Company Number: PHEH2017US001877

PATIENT
  Sex: Female

DRUGS (2)
  1. JADENU [Suspect]
     Active Substance: DEFERASIROX
     Dosage: UNK UNK, QD
     Route: 065
     Dates: start: 201702
  2. JADENU [Suspect]
     Active Substance: DEFERASIROX
     Indication: SICKLE CELL ANAEMIA
     Dosage: UNK UNK, QD
     Route: 065
     Dates: end: 201701

REACTIONS (1)
  - Liver function test abnormal [Not Recovered/Not Resolved]
